FAERS Safety Report 8963025 (Version 1)
Quarter: 2012Q4

REPORT INFORMATION
  Report Type: 
  Country: FR (occurrence: FR)
  Receive Date: 20121213
  Receipt Date: 20121213
  Transmission Date: 20130627
  Serious: Yes (Other)
  Sender: FDA-Public Use
  Company Number: FR-ACTELION-A-CH2012-75969

PATIENT
  Age: 51 Year
  Sex: Male

DRUGS (12)
  1. TRACLEER [Suspect]
     Indication: PULMONARY HYPERTENSION
     Dosage: 125 mg, bid
     Route: 048
     Dates: end: 20120729
  2. TRACLEER [Suspect]
     Dosage: UNK mg, UNK
     Route: 048
     Dates: start: 2004
  3. TRAMADOL [Suspect]
     Dosage: UNK
     Dates: start: 201206, end: 20120629
  4. CRESTOR [Concomitant]
     Dosage: 5 mg, UNK
     Route: 048
  5. ALLOPURINOL [Concomitant]
  6. BROMAZEPAN [Concomitant]
  7. PREVISCAN [Concomitant]
  8. REVATIO [Concomitant]
     Dosage: 20 mg, tid
     Dates: start: 2008
  9. ALDALIX [Concomitant]
     Dosage: UNK
  10. MONOTILDIEM [Concomitant]
     Dosage: 200 mg, qd
  11. PLAVIX [Concomitant]
     Dosage: 75 mg, qd
  12. DAONIL [Concomitant]
     Dosage: 5 mg, qd

REACTIONS (7)
  - Hepatocellular injury [Recovered/Resolved]
  - Aspartate aminotransferase increased [Recovered/Resolved]
  - Alanine aminotransferase increased [Recovered/Resolved]
  - Gamma-glutamyltransferase increased [Recovered/Resolved]
  - Drug interaction [Unknown]
  - Hepatic ischaemia [Unknown]
  - Arthralgia [Unknown]
